FAERS Safety Report 23390355 (Version 1)
Quarter: 2024Q1

REPORT INFORMATION
  Report Type: Spontaneous
  Country: NP (occurrence: NP)
  Receive Date: 20240111
  Receipt Date: 20240111
  Transmission Date: 20240410
  Serious: Yes (Life-Threatening, Hospitalization, Other)
  Sender: FDA-Public Use
  Company Number: NP-SUN PHARMACEUTICAL INDUSTRIES LTD-2023R1-426530

PATIENT
  Age: 60 Year
  Sex: Female

DRUGS (3)
  1. FUROSEMIDE [Suspect]
     Active Substance: FUROSEMIDE
     Indication: Swelling face
     Dosage: UNK
     Route: 065
  2. FUROSEMIDE [Suspect]
     Active Substance: FUROSEMIDE
     Indication: Oedema peripheral
  3. NIMESULIDE [Suspect]
     Active Substance: NIMESULIDE
     Indication: Myalgia
     Dosage: UNK
     Route: 065

REACTIONS (2)
  - Cross sensitivity reaction [Unknown]
  - Toxic epidermal necrolysis [Unknown]
